FAERS Safety Report 20695294 (Version 1)
Quarter: 2022Q2

REPORT INFORMATION
  Report Type: Spontaneous
  Country: US (occurrence: None)
  Receive Date: 20220408
  Receipt Date: 20220408
  Transmission Date: 20220721
  Serious: Yes (unspecified)
  Sender: FDA-Public Use
  Company Number: None

PATIENT
  Age: 51 Year
  Sex: Male

DRUGS (1)
  1. OCREVUS [Suspect]
     Active Substance: OCRELIZUMAB

REACTIONS (8)
  - Pruritus [None]
  - Urticaria [None]
  - Hyperhidrosis [None]
  - Infusion related reaction [None]
  - Somnolence [None]
  - Discomfort [None]
  - Feeling abnormal [None]
  - Erythema [None]

NARRATIVE: CASE EVENT DATE: 20220405
